FAERS Safety Report 11611695 (Version 2)
Quarter: 2015Q4

REPORT INFORMATION
  Report Type: Spontaneous
  Country: SE (occurrence: SE)
  Receive Date: 20151008
  Receipt Date: 20151110
  Transmission Date: 20160304
  Serious: Yes (Death, Other)
  Sender: FDA-Public Use
  Company Number: SE-SA-2015SA154276

PATIENT
  Age: 83 Year
  Sex: Male

DRUGS (13)
  1. WARFARIN ^ORION^ [Interacting]
     Active Substance: WARFARIN
     Indication: ATRIAL FIBRILLATION
     Dosage: STRENGTH: 2.5 MG
     Route: 048
     Dates: start: 20150718, end: 20150909
  2. RAMIPRIL. [Concomitant]
     Active Substance: RAMIPRIL
  3. ALVEDON [Concomitant]
     Active Substance: ACETAMINOPHEN
  4. LAXIDO [Concomitant]
     Active Substance: POLYETHYLENE GLYCOL 3350\POTASSIUM CHLORIDE\SODIUM BICARBONATE\SODIUM CHLORIDE
  5. METOPROLOL [Concomitant]
     Active Substance: METOPROLOL
  6. BETNOVATE [Concomitant]
     Active Substance: BETAMETHASONE
  7. BICALUTAMIDE. [Concomitant]
     Active Substance: BICALUTAMIDE
  8. ZOPICLONE [Concomitant]
     Active Substance: ZOPICLONE
  9. FUROSEMIDE. [Concomitant]
     Active Substance: FUROSEMIDE
  10. NITROLINGUAL [Concomitant]
     Active Substance: NITROGLYCERIN
  11. ATORVASTATIN [Concomitant]
     Active Substance: ATORVASTATIN
  12. CLOPIDOGREL BISULFATE. [Suspect]
     Active Substance: CLOPIDOGREL BISULFATE
     Indication: MYOCARDIAL INFARCTION
     Route: 048
     Dates: start: 20150624, end: 20150909
  13. OMEPRAZOLE. [Concomitant]
     Active Substance: OMEPRAZOLE

REACTIONS (2)
  - Drug interaction [Unknown]
  - Cerebral haemorrhage [Fatal]

NARRATIVE: CASE EVENT DATE: 20150624
